FAERS Safety Report 9105210 (Version 1)
Quarter: 2013Q1

REPORT INFORMATION
  Report Type: Spontaneous
  Country: CA (occurrence: US)
  Receive Date: 20130220
  Receipt Date: 20130220
  Transmission Date: 20140127
  Serious: Yes (Other)
  Sender: FDA-Public Use
  Company Number: CA-RB-049765-13

PATIENT
  Age: 60 Year
  Sex: Female

DRUGS (1)
  1. DELSYM [Suspect]
     Indication: PRODUCT USED FOR UNKNOWN INDICATION
     Dosage: STOPPED ON 06-FEB-2013
     Route: 048
     Dates: start: 20130205

REACTIONS (1)
  - Blood glucose increased [Not Recovered/Not Resolved]
